FAERS Safety Report 4275544-6 (Version None)
Quarter: 2004Q1

REPORT INFORMATION
  Report Type: 
  Country: None (occurrence: None)
  Receive Date: 20040121
  Receipt Date: 20040109
  Transmission Date: 20041129
  Serious: Yes (Life-Threatening)
  Sender: FDA-Public Use
  Company Number: GB-BRISTOL-MYERS SQUIBB COMPANY-12478392

PATIENT
  Age: 17 Year
  Sex: Male
  Weight: 78 kg

DRUGS (12)
  1. MITOXANA [Suspect]
     Indication: SARCOMA
     Dosage: TOTAL DOSE: 17.4 G  ADDITIONAL LOT #:03I22OE0026
     Route: 042
     Dates: start: 20031124, end: 20031126
  2. VINCRISTINE [Concomitant]
     Indication: SARCOMA
     Route: 042
     Dates: start: 20031124
  3. WARFARIN SODIUM [Concomitant]
     Route: 048
  4. DOXORUBICIN HCL [Concomitant]
     Indication: SARCOMA
     Route: 042
     Dates: start: 20031124
  5. DEXAMETHASONE [Concomitant]
     Route: 048
  6. DOMPERIDONE [Concomitant]
     Route: 048
  7. CIPROFLOXACIN [Concomitant]
     Route: 048
  8. FLUCONAZOLE [Concomitant]
     Route: 048
  9. NABILONE [Concomitant]
     Route: 048
  10. FILGRASTIM [Concomitant]
     Route: 058
  11. MESNA [Concomitant]
     Route: 042
  12. ONDANSETRON [Concomitant]
     Route: 048

REACTIONS (2)
  - BLOOD CREATININE INCREASED [None]
  - ENCEPHALOPATHY [None]
